FAERS Safety Report 10097450 (Version 1)
Quarter: 2014Q2

REPORT INFORMATION
  Report Type: Spontaneous
  Country: CN (occurrence: CN)
  Receive Date: 20140423
  Receipt Date: 20140423
  Transmission Date: 20141212
  Serious: Yes (Other)
  Sender: FDA-Public Use
  Company Number: CN-BAXTER-2014BAX019092

PATIENT
  Sex: Male
  Weight: 80 kg

DRUGS (3)
  1. 0.9% SODIUM CHLORIDE INJECTION [Suspect]
     Indication: MEDICATION DILUTION
     Route: 041
     Dates: start: 20130307, end: 20130310
  2. 5% GLUCOSE  INJECTION [Suspect]
     Indication: MEDICATION DILUTION
     Route: 041
     Dates: start: 20130308, end: 20130310
  3. THYMOPENTIN [Suspect]
     Indication: IMMUNOMODULATORY THERAPY
     Route: 041
     Dates: start: 20130308, end: 20130310

REACTIONS (1)
  - Anaphylactic reaction [Recovering/Resolving]
